FAERS Safety Report 5098689-X (Version None)
Quarter: 2006Q3

REPORT INFORMATION
  Report Type: 
  Country: None (occurrence: None)
  Receive Date: 20060905
  Receipt Date: 20060824
  Transmission Date: 20061208
  Serious: Yes (Hospitalization)
  Sender: FDA-Public Use
  Company Number: 228144

PATIENT
  Age: 41 Year
  Sex: Female

DRUGS (4)
  1. RITUXAN [Suspect]
     Indication: RHEUMATOID ARTHRITIS
     Dosage: 1000 MG, SINGLE, INTRAVENOUS
     Route: 042
     Dates: start: 20060727
  2. ARAVA [Concomitant]
  3. TYLENOL (CAPLET) [Concomitant]
  4. ADVIL [Concomitant]

REACTIONS (4)
  - CHEST PAIN [None]
  - DYSPNOEA [None]
  - PAIN IN JAW [None]
  - TACHYCARDIA [None]
